FAERS Safety Report 15877844 (Version 1)
Quarter: 2019Q1

REPORT INFORMATION
  Report Type: Spontaneous
  Country: CA (occurrence: CA)
  Receive Date: 20190128
  Receipt Date: 20190128
  Transmission Date: 20190417
  Serious: Yes (Hospitalization, Other)
  Sender: FDA-Public Use
  Company Number: CA-TEVA-2019-CA-1005496

PATIENT
  Sex: Female

DRUGS (3)
  1. ZOLPIDEM [Concomitant]
     Active Substance: ZOLPIDEM\ZOLPIDEM TARTRATE
     Route: 065
  2. VALPROIC ACID. [Suspect]
     Active Substance: VALPROIC ACID
     Indication: BIPOLAR DISORDER
     Dosage: 250 MILLIGRAM DAILY;
     Route: 048
  3. ACETAMINOPHEN/CHLOR PHENAMINE MALEATE/PSEUDOEPHEDRINE HYDROCHLORIDE [Concomitant]
     Route: 065

REACTIONS (8)
  - Feeling drunk [Unknown]
  - Vertigo [Unknown]
  - Feeling abnormal [Unknown]
  - Depressed mood [Unknown]
  - Muscular weakness [Unknown]
  - Back pain [Unknown]
  - Mental impairment [Unknown]
  - Neck pain [Unknown]
